FAERS Safety Report 12101073 (Version 1)
Quarter: 2016Q1

REPORT INFORMATION
  Report Type: Spontaneous
  Country: US (occurrence: US)
  Receive Date: 20160222
  Receipt Date: 20160222
  Transmission Date: 20160526
  Serious: No
  Sender: FDA-Public Use
  Company Number: US-SHIRE-US201601716

PATIENT
  Age: 80 Year
  Sex: Female
  Weight: 86.17 kg

DRUGS (11)
  1. METHYLPREDNISOLONE. [Concomitant]
     Active Substance: METHYLPREDNISOLONE
     Indication: RHEUMATOID ARTHRITIS
     Dosage: 4 MG, 1X/DAY:QD
     Route: 065
  2. COUMADIN [Concomitant]
     Active Substance: WARFARIN SODIUM
     Indication: PULMONARY EMBOLISM
     Dosage: UNK, 1X/DAY:QD
     Route: 065
     Dates: start: 2003
  3. LEUCOVORIN                         /00566701/ [Concomitant]
     Active Substance: LEUCOVORIN
     Indication: ADVERSE DRUG REACTION
     Dosage: UNK, 1X/WEEK
     Route: 065
  4. PENTASA [Suspect]
     Active Substance: MESALAMINE
     Dosage: 500 MG, 3X/DAY:TID
     Route: 048
     Dates: start: 201511
  5. PENTASA [Suspect]
     Active Substance: MESALAMINE
     Indication: CROHN^S DISEASE
     Dosage: 500 MG, 2X/DAY:BID
     Route: 048
     Dates: start: 2015, end: 2015
  6. LEUCOVORIN                         /00566701/ [Concomitant]
     Active Substance: LEUCOVORIN
     Indication: PROPHYLAXIS
  7. FOLIC ACID. [Concomitant]
     Active Substance: FOLIC ACID
     Indication: RHEUMATOID ARTHRITIS
     Dosage: UNK, 1X/DAY:QD
     Route: 065
  8. VITAMIN B12                        /07503801/ [Concomitant]
     Indication: PRODUCT USED FOR UNKNOWN INDICATION
     Dosage: UNK, 1X/DAY:QD
     Route: 048
  9. PENTASA [Suspect]
     Active Substance: MESALAMINE
     Dosage: 500 MG, 1X/DAY:QD
     Route: 048
     Dates: start: 2015, end: 2015
  10. METHOTREXATE [Concomitant]
     Active Substance: METHOTREXATE
     Indication: RHEUMATOID ARTHRITIS
     Dosage: UNK, 1X/WEEK
     Route: 065
  11. CALCIUM [Concomitant]
     Active Substance: CALCIUM
     Indication: PRODUCT USED FOR UNKNOWN INDICATION
     Dosage: 600 MG, 1X/DAY:QD
     Route: 048

REACTIONS (5)
  - Anaemia [Not Recovered/Not Resolved]
  - Product use issue [Not Recovered/Not Resolved]
  - General physical condition abnormal [Unknown]
  - Body height decreased [Unknown]
  - Alopecia [Not Recovered/Not Resolved]

NARRATIVE: CASE EVENT DATE: 2015
